FAERS Safety Report 17434532 (Version 1)
Quarter: 2020Q1

REPORT INFORMATION
  Report Type: Spontaneous
  Country: FR (occurrence: FR)
  Receive Date: 20200219
  Receipt Date: 20200219
  Transmission Date: 20200409
  Serious: Yes (Hospitalization, Other)
  Sender: FDA-Public Use
  Company Number: FR-PFIZER INC-2020071035

PATIENT
  Age: 49 Year
  Sex: Female
  Weight: 69 kg

DRUGS (2)
  1. RAMIPRIL. [Suspect]
     Active Substance: RAMIPRIL
     Indication: HYPERTENSION
     Dosage: 1 DF, 1X/DAY
     Route: 048
     Dates: start: 20191018
  2. LERCANIDIPINE HYDROCHLORIDE [Suspect]
     Active Substance: LERCANIDIPINE HYDROCHLORIDE
     Indication: HYPERTENSION
     Dosage: 1 DF, 1X/DAY
     Route: 048
     Dates: start: 20191018, end: 20191021

REACTIONS (2)
  - Angioedema [Not Recovered/Not Resolved]
  - Enteritis [Not Recovered/Not Resolved]

NARRATIVE: CASE EVENT DATE: 20191020
